FAERS Safety Report 9248239 (Version 2)
Quarter: 2013Q2

REPORT INFORMATION
  Report Type: Spontaneous
  Country: IT (occurrence: IT)
  Receive Date: 20130423
  Receipt Date: 20130503
  Transmission Date: 20140414
  Serious: Yes (Death, Hospitalization, Other)
  Sender: FDA-Public Use
  Company Number: IT-ELI_LILLY_AND_COMPANY-IT201304005633

PATIENT
  Age: 58 Year
  Sex: Male
  Weight: 85 kg

DRUGS (13)
  1. EFIENT [Suspect]
     Indication: STENT PLACEMENT
     Dosage: 10 MG, QD
     Route: 048
     Dates: start: 20111113, end: 20120305
  2. CARDIOASPIRIN [Concomitant]
     Indication: ACUTE MYOCARDIAL INFARCTION
     Dosage: 100 MG, UNK
     Dates: start: 20111113, end: 20120305
  3. LASITONE [Concomitant]
     Dosage: 1 DF, UNK
  4. TRIATEC [Concomitant]
     Dosage: 2.5 MG, BID
  5. ANTRA [Concomitant]
     Dosage: 20 DF, UNK
  6. CLEXANE [Concomitant]
     Dosage: 8000 DF, BID
  7. TORVAST [Concomitant]
     Dosage: 80 DF, UNK
  8. PANTOPRAZOLE [Concomitant]
     Dosage: 20 MG, UNK
  9. BISOPROLOL [Concomitant]
     Dosage: 1.25 MG, UNK
  10. BISOPROLOL [Concomitant]
     Dosage: 2.5 MG, UNK
  11. WARFARIN [Concomitant]
     Indication: ACUTE MYOCARDIAL INFARCTION
     Dosage: UNK
     Dates: start: 20111201, end: 20120305
  12. BIVALIRUDIN [Concomitant]
  13. ABCIXIMAB [Concomitant]

REACTIONS (13)
  - Cerebral haemorrhage [Fatal]
  - Coronary artery disease [Unknown]
  - Ventricular arrhythmia [Unknown]
  - Atrial fibrillation [Unknown]
  - Intracardiac thrombus [Unknown]
  - Arteriovenous malformation [Unknown]
  - Brain oedema [Unknown]
  - Cardiac failure [Unknown]
  - Dyslipidaemia [Unknown]
  - Urinary tract infection [Unknown]
  - Angina pectoris [Unknown]
  - Cough [Unknown]
  - Dyspnoea [Unknown]
